FAERS Safety Report 9131426 (Version 1)
Quarter: 2013Q1

REPORT INFORMATION
  Report Type: Spontaneous
  Country: US (occurrence: US)
  Receive Date: 20130301
  Receipt Date: 20130301
  Transmission Date: 20140127
  Serious: No
  Sender: FDA-Public Use
  Company Number: US-PFIZER INC-2013070909

PATIENT
  Sex: 0

DRUGS (1)
  1. NORVASC [Suspect]
     Dosage: UNK

REACTIONS (5)
  - Drug intolerance [Unknown]
  - Agitation [Unknown]
  - Irritability [Unknown]
  - Anxiety [Unknown]
  - Muscle tightness [Unknown]
